FAERS Safety Report 8439234-8 (Version None)
Quarter: 2012Q2

REPORT INFORMATION
  Report Type: 
  Country: None (occurrence: None)
  Receive Date: 20120615
  Receipt Date: 20120610
  Transmission Date: 20120825
  Serious: Yes (Hospitalization)
  Sender: FDA-Public Use
  Company Number: PHHY2012JP049399

PATIENT
  Age: 16 Year
  Sex: Female

DRUGS (6)
  1. CYCLOSPORINE [Suspect]
     Dosage: 200 MG, DAILY
     Route: 048
  2. PREDNISOLONE [Concomitant]
     Indication: HISTIOCYTOSIS HAEMATOPHAGIC
     Dosage: UNK UKN, UNK
  3. PREDNISOLONE [Concomitant]
     Dosage: 60 MG, DAILY
  4. ETOPOSIDE [Concomitant]
     Indication: HISTIOCYTOSIS HAEMATOPHAGIC
  5. CYCLOSPORINE [Suspect]
     Indication: HISTIOCYTOSIS HAEMATOPHAGIC
     Dosage: UNK UKN, UNK
  6. PREDNISOLONE [Concomitant]
     Dosage: 15 MG, DAILY

REACTIONS (6)
  - ARTHRALGIA [None]
  - OROPHARYNGEAL PAIN [None]
  - RASH [None]
  - STILL'S DISEASE ADULT ONSET [None]
  - PYREXIA [None]
  - HISTIOCYTOSIS HAEMATOPHAGIC [None]
